FAERS Safety Report 7633264-1 (Version None)
Quarter: 2011Q3

REPORT INFORMATION
  Report Type: 
  Country: None (occurrence: None)
  Receive Date: 20110725
  Receipt Date: 20110720
  Transmission Date: 20111222
  Serious: Yes (Other)
  Sender: FDA-Public Use
  Company Number: US-ROCHE-791294

PATIENT
  Sex: Male

DRUGS (2)
  1. ACCUTANE [Suspect]
     Route: 065
     Dates: start: 19860101, end: 19860101
  2. ACCUTANE [Suspect]
     Route: 065
     Dates: start: 20080101, end: 20100101

REACTIONS (3)
  - CROHN'S DISEASE [None]
  - COLITIS ULCERATIVE [None]
  - IRRITABLE BOWEL SYNDROME [None]
